FAERS Safety Report 6327013-7 (Version None)
Quarter: 2009Q3

REPORT INFORMATION
  Report Type: 
  Country: None (occurrence: None)
  Receive Date: 20090825
  Receipt Date: 20090821
  Transmission Date: 20100115
  Serious: Yes (Hospitalization)
  Sender: FDA-Public Use
  Company Number: CH-BAYER-200929145GPV

PATIENT
  Age: 89 Year
  Sex: Female

DRUGS (12)
  1. ASPIRIN [Suspect]
     Indication: DRUG USE FOR UNKNOWN INDICATION
     Dosage: TOTAL DAILY DOSE: 100 MG
     Route: 048
     Dates: end: 20090528
  2. SINTROM [Suspect]
     Indication: DRUG USE FOR UNKNOWN INDICATION
     Route: 048
     Dates: end: 20090528
  3. NEXIUM [Concomitant]
     Route: 042
     Dates: end: 20090528
  4. ENATEC [Concomitant]
     Route: 048
     Dates: end: 20090529
  5. INSULIN [Concomitant]
     Route: 042
  6. LASIX [Concomitant]
     Route: 042
     Dates: start: 20090528, end: 20090529
  7. KONAKION [Concomitant]
     Route: 042
     Dates: start: 20090528, end: 20090528
  8. PROTHROMPLEX TOTAL [Concomitant]
     Route: 042
     Dates: start: 20090528, end: 20090528
  9. GLUCOPHAGE [Concomitant]
     Route: 048
     Dates: end: 20090528
  10. BELOC ZOK [Concomitant]
     Route: 048
     Dates: end: 20090528
  11. TORASEMIDE [Concomitant]
     Route: 048
     Dates: end: 20090528
  12. NITRODERM [Concomitant]
     Route: 062
     Dates: end: 20090528

REACTIONS (6)
  - FATIGUE [None]
  - GASTROINTESTINAL HAEMORRHAGE [None]
  - HAEMORRHAGIC ANAEMIA [None]
  - HYPOTENSION [None]
  - INTERNATIONAL NORMALISED RATIO INCREASED [None]
  - MELAENA [None]
